FAERS Safety Report 4700036-7 (Version None)
Quarter: 2005Q2

REPORT INFORMATION
  Report Type: 
  Country: None (occurrence: None)
  Receive Date: 20050623
  Receipt Date: 20040715
  Transmission Date: 20051028
  Serious: Yes (Hospitalization)
  Sender: FDA-Public Use
  Company Number: US-JNJFOC-20040704896

PATIENT
  Age: 46 Year
  Sex: Female
  Weight: 72.5755 kg

DRUGS (2)
  1. HALDOL [Suspect]
     Indication: EMOTIONAL DISORDER
     Dosage: 1 IN 1 DAY, INTRA-MUSCULAR
     Route: 030
     Dates: start: 20040527
  2. NYQUIL (MEDINITE) [Suspect]
     Indication: DRUG USE FOR UNKNOWN INDICATION
     Dosage: 30 ML, 1 IN 1 DAY, ORAL
     Route: 048
     Dates: start: 20040527

REACTIONS (1)
  - ADVERSE EVENT [None]
